FAERS Safety Report 8533018-8 (Version None)
Quarter: 2012Q3

REPORT INFORMATION
  Report Type: 
  Country: None (occurrence: None)
  Receive Date: 20120724
  Receipt Date: 20120713
  Transmission Date: 20120928
  Serious: Yes (Hospitalization)
  Sender: FDA-Public Use
  Company Number: JP-VERTEX PHARMACEUTICALS INC.-AE-2012-007910

PATIENT
  Age: 73 Year
  Sex: Female

DRUGS (20)
  1. RIBAVIRIN [Concomitant]
     Indication: HEPATITIS C
     Route: 048
     Dates: start: 20120406, end: 20120409
  2. PEGINTERFERON ALFA-2B [Concomitant]
     Indication: HEPATITIS C
     Route: 058
     Dates: start: 20120406
  3. TELMISARTAN [Concomitant]
     Route: 048
  4. TELAVIC (TELAPREVIR) [Suspect]
     Route: 048
     Dates: start: 20120410, end: 20120413
  5. RIBAVIRIN [Concomitant]
     Route: 048
     Dates: start: 20120613
  6. POTASSIUM CHLORIDE [Concomitant]
     Dates: start: 20120409
  7. RIBAVIRIN [Concomitant]
     Route: 048
     Dates: start: 20120410, end: 20120413
  8. TELAVIC (TELAPREVIR) [Suspect]
     Route: 048
     Dates: start: 20120414, end: 20120515
  9. ALLEGRA [Concomitant]
     Route: 048
     Dates: start: 20120406
  10. CONIEL [Concomitant]
     Route: 048
     Dates: start: 20120101, end: 20120427
  11. TELAVIC (TELAPREVIR) [Suspect]
     Indication: HEPATITIS C
     Route: 048
     Dates: start: 20120406, end: 20120409
  12. TELAVIC (TELAPREVIR) [Suspect]
     Route: 048
     Dates: start: 20120518, end: 20120601
  13. RIBAVIRIN [Concomitant]
     Route: 048
     Dates: start: 20120414, end: 20120612
  14. HIRUDOID [Concomitant]
     Route: 061
     Dates: start: 20120406
  15. TELAVIC (TELAPREVIR) [Suspect]
     Route: 048
     Dates: start: 20120516, end: 20120517
  16. AMARYL [Concomitant]
     Route: 048
  17. GASLON N [Concomitant]
     Route: 048
  18. NEXIUM [Concomitant]
     Route: 048
  19. TELAVIC (TELAPREVIR) [Suspect]
     Route: 048
     Dates: start: 20120602, end: 20120629
  20. CONIEL [Concomitant]
     Route: 048
     Dates: start: 20120428, end: 20120503

REACTIONS (1)
  - RENAL DISORDER [None]
